FAERS Safety Report 13447555 (Version 1)
Quarter: 2017Q2

REPORT INFORMATION
  Report Type: Spontaneous
  Country: US (occurrence: US)
  Receive Date: 20170414
  Receipt Date: 20170414
  Transmission Date: 20170830
  Serious: No
  Sender: FDA-Public Use
  Company Number: None

PATIENT
  Age: 57 Year
  Sex: Female

DRUGS (4)
  1. ENBREL [Suspect]
     Active Substance: ETANERCEPT
     Indication: POLYARTHRITIS
  2. ENBREL [Suspect]
     Active Substance: ETANERCEPT
     Indication: TENOSYNOVITIS
  3. ENBREL [Suspect]
     Active Substance: ETANERCEPT
     Indication: DRUG LEVEL
  4. ENBREL [Suspect]
     Active Substance: ETANERCEPT
     Indication: OSTEOARTHRITIS

REACTIONS (2)
  - Condition aggravated [None]
  - Alopecia [None]

NARRATIVE: CASE EVENT DATE: 20170301
